FAERS Safety Report 5206374-6 (Version None)
Quarter: 2007Q1

REPORT INFORMATION
  Report Type: 
  Country: None (occurrence: None)
  Receive Date: 20070111
  Receipt Date: 20061211
  Transmission Date: 20070707
  Serious: Yes (Hospitalization, Other)
  Sender: FDA-Public Use
  Company Number: US-PFIZER INC-2006102297

PATIENT
  Sex: Female
  Weight: 72.6 kg

DRUGS (1)
  1. BEXTRA [Suspect]
     Indication: ARTHRITIS
     Dates: start: 20021203, end: 20030809

REACTIONS (1)
  - CEREBROVASCULAR ACCIDENT [None]
